FAERS Safety Report 18176566 (Version 1)
Quarter: 2020Q3

REPORT INFORMATION
  Report Type: Spontaneous
  Country: US (occurrence: US)
  Receive Date: 20200820
  Receipt Date: 20200820
  Transmission Date: 20201103
  Serious: Yes (Other)
  Sender: FDA-Public Use
  Company Number: US-MYLANLABS-2020M1072189

PATIENT
  Age: 69 Year
  Sex: Female

DRUGS (1)
  1. LEVOTHYROXINE. [Suspect]
     Active Substance: LEVOTHYROXINE
     Indication: PRODUCT USED FOR UNKNOWN INDICATION
     Dosage: 100 MICROGRAM, BID

REACTIONS (5)
  - Narcolepsy [Unknown]
  - Drug ineffective [Unknown]
  - Weight increased [Unknown]
  - Alopecia [Unknown]
  - Lethargy [Unknown]
